FAERS Safety Report 4282518-8 (Version None)
Quarter: 2004Q1

REPORT INFORMATION
  Report Type: 
  Country: None (occurrence: None)
  Receive Date: 20040129
  Receipt Date: 20040120
  Transmission Date: 20041129
  Serious: Yes (Other)
  Sender: FDA-Public Use
  Company Number: 2003122275

PATIENT
  Age: 78 Year
  Sex: Male
  Weight: 67.1324 kg

DRUGS (7)
  1. LIPITOR [Suspect]
     Indication: BLOOD CHOLESTEROL INCREASED
     Dosage: 10 MG (DAILY), ORAL
     Route: 048
     Dates: start: 19970101, end: 19970101
  2. LOPID [Suspect]
     Indication: BLOOD CHOLESTEROL INCREASED
     Dosage: 1800 MG TID ORAL
     Route: 048
  3. GEMFIBROZIL [Suspect]
     Indication: ILL-DEFINED DISORDER
  4. PROPRANOLOL [Concomitant]
  5. LEVOTHYROXINE SODIUM [Concomitant]
  6. LEUPRORELIN ACETATE (LEUPRORELIN ACETATE) [Concomitant]
  7. FLUTAMIDE [Concomitant]

REACTIONS (4)
  - FULL BLOOD COUNT DECREASED [None]
  - PHARMACEUTICAL PRODUCT COMPLAINT [None]
  - PLATELET COUNT DECREASED [None]
  - PROSTATE CANCER [None]
